FAERS Safety Report 5643839-7 (Version None)
Quarter: 2008Q1

REPORT INFORMATION
  Report Type: 
  Country: None (occurrence: None)
  Receive Date: 20080228
  Receipt Date: 20080220
  Transmission Date: 20080703
  Serious: Yes (Hospitalization)
  Sender: FDA-Public Use
  Company Number: FR-GILEAD-2008-0015143

PATIENT
  Sex: Female
  Weight: 50 kg

DRUGS (5)
  1. TRUVADA [Suspect]
     Indication: HIV INFECTION
     Route: 048
     Dates: start: 20071218, end: 20080102
  2. INVIRASE [Suspect]
     Indication: HIV INFECTION
     Route: 048
     Dates: start: 20071218, end: 20080106
  3. NORVIR [Suspect]
     Indication: HIV INFECTION
     Route: 048
     Dates: start: 20071218, end: 20080106
  4. COTAREG [Concomitant]
     Indication: HYPERTENSION
     Route: 048
  5. MOCLAMINE [Concomitant]
     Indication: DEPRESSION
     Route: 048

REACTIONS (12)
  - ANOREXIA [None]
  - ARTHRALGIA [None]
  - ASTHENIA [None]
  - BONE PAIN [None]
  - DRUG HYPERSENSITIVITY [None]
  - DYSGEUSIA [None]
  - DYSPEPSIA [None]
  - GENERAL PHYSICAL CONDITION ABNORMAL [None]
  - PRURITUS [None]
  - RENAL FAILURE ACUTE [None]
  - URTICARIA [None]
  - VOMITING [None]
